FAERS Safety Report 5688654-3 (Version None)
Quarter: 2008Q1

REPORT INFORMATION
  Report Type: 
  Country: None (occurrence: None)
  Receive Date: 20080331
  Receipt Date: 20080325
  Transmission Date: 20080703
  Serious: Yes (Other)
  Sender: FDA-Public Use
  Company Number: PHHY2008GB03864

PATIENT

DRUGS (3)
  1. CLOZAPINE [Suspect]
     Route: 048
     Dates: start: 20050719, end: 20051020
  2. ZAPONEX [Suspect]
     Route: 048
     Dates: start: 20051021, end: 20060623
  3. ZAPONEX [Suspect]
     Route: 048
     Dates: start: 20060627

REACTIONS (1)
  - LUNG NEOPLASM MALIGNANT [None]
